FAERS Safety Report 26157820 (Version 1)
Quarter: 2025Q4

REPORT INFORMATION
  Report Type: Spontaneous
  Country: US (occurrence: None)
  Receive Date: 20251212
  Receipt Date: 20251212
  Transmission Date: 20260117
  Serious: Yes (Disabling, Other)
  Sender: FDA-CTU
  Company Number: None

PATIENT
  Sex: Female

DRUGS (2)
  1. SPIRONOLACTONE [Suspect]
     Active Substance: SPIRONOLACTONE
  2. WINLEVI [Suspect]
     Active Substance: CLASCOTERONE

REACTIONS (6)
  - Pelvic floor dysfunction [None]
  - Dysuria [None]
  - Micturition urgency [None]
  - Pelvic pain [None]
  - Emotional distress [None]
  - Suicidal ideation [None]
